FAERS Safety Report 24898206 (Version 2)
Quarter: 2025Q1

REPORT INFORMATION
  Report Type: Spontaneous
  Country: PT (occurrence: PT)
  Receive Date: 20250129
  Receipt Date: 20250321
  Transmission Date: 20250409
  Serious: Yes (Hospitalization, Other)
  Sender: ALEXION PHARMACEUTICALS
  Company Number: PT-SA-2024SA381700

PATIENT
  Age: 1 Month

DRUGS (3)
  1. BEYFORTUS [Suspect]
     Active Substance: NIRSEVIMAB-ALIP
     Dosage: 50 MILLIGRAM, QD
     Route: 065
  2. Vigantol [Concomitant]
     Indication: Supplementation therapy
     Dosage: 1 DROP, QD
  3. BEYFORTUS [Suspect]
     Active Substance: NIRSEVIMAB-ALIP

REACTIONS (3)
  - Respiratory syncytial virus infection [Recovered/Resolved]
  - Drug ineffective [Unknown]
  - Respiratory syncytial virus bronchiolitis [Recovered/Resolved]
